FAERS Safety Report 8809879 (Version 1)
Quarter: 2012Q4

REPORT INFORMATION
  Report Type: 
  Country: US (occurrence: US)
  Receive Date: 20120926
  Receipt Date: 20120926
  Transmission Date: 20130627
  Serious: Yes (Hospitalization, Other)
  Sender: FDA-Public Use
  Company Number: US-ASTRAZENECA-2012SE72468

PATIENT
  Age: 757 Month
  Sex: Female
  Weight: 62.6 kg

DRUGS (26)
  1. PULMICORT FLEXHALER [Suspect]
     Indication: CHRONIC OBSTRUCTIVE PULMONARY DISEASE
     Dosage: 180 MCG 2 PUFFS TWO TIMES A DAY
     Route: 055
  2. NEXIUM [Suspect]
     Indication: GASTROOESOPHAGEAL REFLUX DISEASE
     Route: 048
  3. NAPROXYN [Concomitant]
     Route: 048
  4. CYMBALTA [Concomitant]
     Route: 048
  5. CLONIPIN [Concomitant]
     Dosage: DAILY
     Route: 048
  6. ZETIA [Concomitant]
     Route: 048
  7. CELEXA [Concomitant]
     Route: 048
  8. NURONTIN [Concomitant]
     Route: 048
  9. VITAMIN B12 [Concomitant]
     Route: 048
  10. IRON [Concomitant]
     Route: 048
  11. BENEDRYL [Concomitant]
     Route: 048
  12. FLEXERIL [Concomitant]
     Route: 048
  13. EVISTA [Concomitant]
     Route: 048
  14. VITAMIN D3 [Concomitant]
     Dosage: DAILY
     Route: 048
  15. SPIRIVA [Concomitant]
     Indication: CHRONIC OBSTRUCTIVE PULMONARY DISEASE
     Route: 055
  16. AVINZA [Concomitant]
     Indication: PAIN
     Route: 048
  17. PERCOCET [Concomitant]
     Indication: PAIN
     Route: 048
  18. NITROGEN [Concomitant]
     Indication: CARDIAC DISORDER
     Dosage: AS REQUIRED
     Route: 050
  19. LANTIS [Concomitant]
     Indication: DIABETES MELLITUS
     Dosage: 72 UNITS AT NIGHT
     Route: 058
  20. NOVOLOG INSULIN [Concomitant]
     Indication: DIABETES MELLITUS
     Dosage: 4 UNITS AS REQUIRED
     Route: 058
  21. PATADAY [Concomitant]
     Indication: CATARACT
     Dosage: DAILY
     Route: 050
  22. GLUCOVANCE [Concomitant]
     Indication: DIABETES MELLITUS
     Route: 048
  23. ASPIRIN [Concomitant]
     Route: 048
  24. LISINOPRIL [Concomitant]
     Route: 048
  25. LIPITOR [Concomitant]
     Route: 048
  26. VEGETABLE LAXATIVE [Concomitant]
     Dosage: DAILY
     Route: 058

REACTIONS (13)
  - Transient ischaemic attack [Unknown]
  - Dehydration [Unknown]
  - Myocardial infarction [Unknown]
  - Chronic obstructive pulmonary disease [Unknown]
  - Vascular occlusion [Unknown]
  - Cataract [Unknown]
  - Gallbladder enlargement [Unknown]
  - Liver disorder [Unknown]
  - Back disorder [Unknown]
  - Back pain [Unknown]
  - Osteoarthritis [Unknown]
  - Nerve compression [Unknown]
  - Drug dose omission [Unknown]
